FAERS Safety Report 12343034 (Version 2)
Quarter: 2016Q2

REPORT INFORMATION
  Report Type: Spontaneous
  Country: US (occurrence: US)
  Receive Date: 20160506
  Receipt Date: 20160623
  Transmission Date: 20160815
  Serious: No
  Sender: FDA-Public Use
  Company Number: US-ELI_LILLY_AND_COMPANY-US201604003389

PATIENT
  Age: 58 Year
  Sex: Female
  Weight: 123.54 kg

DRUGS (3)
  1. TRULICITY [Suspect]
     Active Substance: DULAGLUTIDE
     Indication: TYPE 2 DIABETES MELLITUS
     Dosage: UNK, WEEKLY (1/W)
     Route: 058
     Dates: start: 20160327, end: 20160327
  2. JANUMET [Concomitant]
     Active Substance: METFORMIN HYDROCHLORIDE\SITAGLIPTIN PHOSPHATE
     Dosage: 100 MG, OTHER
  3. GLIMEPIRIDE. [Concomitant]
     Active Substance: GLIMEPIRIDE
     Dosage: 4 MG, UNK

REACTIONS (9)
  - Chromaturia [Recovered/Resolved]
  - Eructation [Recovered/Resolved]
  - Presyncope [Recovered/Resolved]
  - Vomiting [Recovered/Resolved]
  - Drug dispensing error [Recovered/Resolved]
  - Blood glucose increased [Recovered/Resolved]
  - Decreased appetite [Recovered/Resolved]
  - Blood glucose fluctuation [Recovered/Resolved]
  - Nausea [Recovered/Resolved]

NARRATIVE: CASE EVENT DATE: 201603
